FAERS Safety Report 16208984 (Version 1)
Quarter: 2019Q2

REPORT INFORMATION
  Report Type: Spontaneous
  Country: US (occurrence: US)
  Receive Date: 20190417
  Receipt Date: 20190417
  Transmission Date: 20190711
  Serious: No
  Sender: FDA-Public Use
  Company Number: US-SA-2019SA106300

PATIENT
  Age: 87 Year
  Sex: Male

DRUGS (1)
  1. TOUJEO [Suspect]
     Active Substance: INSULIN GLARGINE
     Indication: TYPE 2 DIABETES MELLITUS
     Dosage: 10 U, QD

REACTIONS (5)
  - Dysstasia [Unknown]
  - Asthenia [Unknown]
  - Abdominal distension [Unknown]
  - Gait disturbance [Unknown]
  - Dyspnoea [Unknown]
